FAERS Safety Report 12768916 (Version 3)
Quarter: 2020Q4

REPORT INFORMATION
  Report Type: Spontaneous
  Country: US (occurrence: US)
  Receive Date: 20160921
  Receipt Date: 20201027
  Transmission Date: 20210113
  Serious: No
  Sender: FDA-Public Use
  Company Number: US-JAZZ-2016-US-010446

PATIENT
  Age: 48 Year
  Sex: Female

DRUGS (25)
  1. IBUPROFEN. [Suspect]
     Active Substance: IBUPROFEN
     Indication: PRODUCT USED FOR UNKNOWN INDICATION
     Dosage: UNKNOWN
     Dates: start: 20160111, end: 20160531
  2. CETIRIZINE HYDROCHLORIDE. [Concomitant]
     Active Substance: CETIRIZINE HYDROCHLORIDE
  3. VENTOLIN HFA [Concomitant]
     Active Substance: ALBUTEROL SULFATE
  4. OMEPRAZOLE. [Concomitant]
     Active Substance: OMEPRAZOLE
  5. XYREM [Suspect]
     Active Substance: SODIUM OXYBATE
     Indication: FIBROMYALGIA
     Dosage: 2.25 G, BID
     Route: 048
     Dates: start: 200604, end: 200605
  6. XYREM [Suspect]
     Active Substance: SODIUM OXYBATE
     Indication: CATAPLEXY
     Dosage: 4.5 G, BID
     Route: 048
     Dates: start: 200611, end: 2016
  7. OXYCODONE HYDROCHLORIDE. [Concomitant]
     Active Substance: OXYCODONE HYDROCHLORIDE
  8. METOPROLOL SUCCINATE. [Concomitant]
     Active Substance: METOPROLOL SUCCINATE
  9. AMBIEN CR [Concomitant]
     Active Substance: ZOLPIDEM TARTRATE
  10. LEXAPRO [Concomitant]
     Active Substance: ESCITALOPRAM OXALATE
  11. ZOLOFT [Concomitant]
     Active Substance: SERTRALINE HYDROCHLORIDE
  12. TRAZODONE [Concomitant]
     Active Substance: TRAZODONE HYDROCHLORIDE
  13. TYLENOL EXTRA STRENGTH [Concomitant]
     Active Substance: ACETAMINOPHEN
  14. CYMBALTA [Concomitant]
     Active Substance: DULOXETINE HYDROCHLORIDE
  15. SYMBICORT [Suspect]
     Active Substance: BUDESONIDE\FORMOTEROL FUMARATE DIHYDRATE
     Indication: PRODUCT USED FOR UNKNOWN INDICATION
     Dosage: UNKNOWN DOSE
     Dates: start: 20151019, end: 20160229
  16. PERCOCET [Concomitant]
     Active Substance: ACETAMINOPHEN\OXYCODONE HYDROCHLORIDE
  17. SERTRALINE HCL [Concomitant]
     Active Substance: SERTRALINE HYDROCHLORIDE
  18. CLARITINE [Concomitant]
     Active Substance: LORATADINE
  19. XYREM [Suspect]
     Active Substance: SODIUM OXYBATE
     Indication: NARCOLEPSY
     Dosage: DOSE ADJUSTMENTS
     Route: 048
     Dates: start: 2006, end: 2006
  20. FERROUS SULFATE. [Concomitant]
     Active Substance: FERROUS SULFATE
  21. LORAZEPAM. [Concomitant]
     Active Substance: LORAZEPAM
  22. PREDNISONE. [Concomitant]
     Active Substance: PREDNISONE
  23. LISINOPRIL/HCTZ [Concomitant]
     Active Substance: HYDROCHLOROTHIAZIDE\LISINOPRIL
  24. CELEBREX [Concomitant]
     Active Substance: CELECOXIB
  25. REMERON [Concomitant]
     Active Substance: MIRTAZAPINE

REACTIONS (5)
  - Intervertebral disc disorder [Unknown]
  - Limb injury [Unknown]
  - Back injury [Unknown]
  - Cervical radiculopathy [Not Recovered/Not Resolved]
  - Carpal tunnel syndrome [Not Recovered/Not Resolved]

NARRATIVE: CASE EVENT DATE: 2015
